FAERS Safety Report 20976672 (Version 1)
Quarter: 2022Q2

REPORT INFORMATION
  Report Type: Spontaneous
  Country: US (occurrence: None)
  Receive Date: 20220617
  Receipt Date: 20220617
  Transmission Date: 20220720
  Serious: No
  Sender: FDA-Public Use
  Company Number: None

PATIENT

DRUGS (2)
  1. ETHOSUXIMIDE [Suspect]
     Active Substance: ETHOSUXIMIDE
     Route: 048
  2. DOCUSATE SODIUM [Suspect]
     Active Substance: DOCUSATE SODIUM

REACTIONS (2)
  - Product appearance confusion [None]
  - Wrong product stored [None]
